FAERS Safety Report 6894806-7 (Version None)
Quarter: 2010Q3

REPORT INFORMATION
  Report Type: 
  Country: None (occurrence: None)
  Receive Date: 20100802
  Receipt Date: 20100722
  Transmission Date: 20110219
  Serious: Yes (Hospitalization)
  Sender: FDA-Public Use
  Company Number: JP-JNJFOC-20100200294

PATIENT
  Sex: Female
  Weight: 56 kg

DRUGS (6)
  1. REMICADE [Suspect]
     Indication: RHEUMATOID ARTHRITIS
     Dosage: 4 INFUSIONS, LAST ONE ON 6-OCT-2009
     Route: 042
  2. REMICADE [Suspect]
     Route: 042
  3. RHEUMATREX [Concomitant]
     Indication: RHEUMATOID ARTHRITIS
     Route: 048
  4. PREDNISOLONE [Concomitant]
     Indication: RHEUMATOID ARTHRITIS
     Route: 048
  5. OMEPRAL [Concomitant]
     Indication: REFLUX GASTRITIS
     Route: 048
  6. FOSAMAC [Concomitant]
     Indication: OSTEOPOROSIS
     Route: 048

REACTIONS (2)
  - PERITONEAL TUBERCULOSIS [None]
  - PULMONARY TUBERCULOSIS [None]
